FAERS Safety Report 7035924-2 (Version None)
Quarter: 2010Q4

REPORT INFORMATION
  Report Type: 
  Country: None (occurrence: None)
  Receive Date: 20101008
  Receipt Date: 20100929
  Transmission Date: 20110411
  Serious: Yes (Other)
  Sender: FDA-Public Use
  Company Number: US-SANOFI-AVENTIS-2010SA059546

PATIENT
  Age: 74 Year
  Sex: Female
  Weight: 77.1 kg

DRUGS (14)
  1. PLAVIX [Suspect]
     Route: 048
     Dates: start: 20050101
  2. WARFARIN SODIUM [Suspect]
     Route: 065
     Dates: start: 20050101
  3. CYMBALTA [Concomitant]
  4. COREG [Concomitant]
  5. LANOXIN [Concomitant]
  6. ZOCOR [Concomitant]
  7. IMDUR [Concomitant]
  8. WELLBUTRIN [Concomitant]
  9. ALLEGRA [Concomitant]
  10. PROTONIX [Concomitant]
  11. XANAX [Concomitant]
  12. PHENERGAN [Concomitant]
  13. INSULIN [Concomitant]
  14. ASPIRIN [Concomitant]

REACTIONS (1)
  - THROMBOSIS [None]
